FAERS Safety Report 12443551 (Version 1)
Quarter: 2016Q2

REPORT INFORMATION
  Report Type: Spontaneous
  Country: NL (occurrence: NL)
  Receive Date: 20160607
  Receipt Date: 20160607
  Transmission Date: 20160815
  Serious: Yes (Other)
  Sender: FDA-Public Use
  Company Number: NL-ALLERGAN-1658959US

PATIENT
  Age: 48 Year
  Sex: Male

DRUGS (1)
  1. BOTOX [Suspect]
     Active Substance: ONABOTULINUMTOXINA
     Indication: MUSCLE SPASTICITY
     Dosage: 600 UNITS, SINGLE
     Route: 030

REACTIONS (9)
  - Deafness transitory [Recovered/Resolved]
  - Dysphagia [Unknown]
  - Cerebral haemorrhage [Unknown]
  - Wheezing [Unknown]
  - Dysarthria [Unknown]
  - Head discomfort [Unknown]
  - Fatigue [Unknown]
  - Asthenia [Unknown]
  - Off label use [Unknown]
